FAERS Safety Report 18431436 (Version 1)
Quarter: 2020Q4

REPORT INFORMATION
  Report Type: Spontaneous
  Country: US (occurrence: US)
  Receive Date: 20201027
  Receipt Date: 20201027
  Transmission Date: 20210114
  Serious: No
  Sender: FDA-Public Use
  Company Number: US-CELGENEUS-USA-20201005724

PATIENT

DRUGS (1)
  1. LENALIDOMIDE [Suspect]
     Active Substance: LENALIDOMIDE
     Indication: BRAIN STEM GLIOMA
     Dosage: 116 MILLIGRAM/SQ. METER
     Route: 048

REACTIONS (1)
  - Dysphonia [Unknown]
